FAERS Safety Report 9997551 (Version 1)
Quarter: 2014Q1

REPORT INFORMATION
  Report Type: Spontaneous
  Country: US (occurrence: US)
  Receive Date: 20140311
  Receipt Date: 20140311
  Transmission Date: 20141002
  Serious: Yes (Death, Hospitalization)
  Sender: FDA-Public Use
  Company Number: US-ASTRAZENECA-2014SE16915

PATIENT
  Sex: Male

DRUGS (2)
  1. BRILINTA [Suspect]
     Indication: ACUTE MYOCARDIAL INFARCTION
     Route: 048
  2. ASPIRIN [Concomitant]
     Indication: STENT PLACEMENT
     Route: 048

REACTIONS (4)
  - Death [Fatal]
  - Thrombosis in device [Unknown]
  - Dyspnoea [Unknown]
  - Intentional drug misuse [Unknown]
